FAERS Safety Report 22151456 (Version 1)
Quarter: 2023Q1

REPORT INFORMATION
  Report Type: Spontaneous
  Country: US (occurrence: None)
  Receive Date: 20230328
  Receipt Date: 20230328
  Transmission Date: 20230418
  Serious: Yes (unspecified)
  Sender: FDA-Public Use
  Company Number: None

PATIENT
  Age: 32 Year
  Sex: Female
  Weight: 81 kg

DRUGS (1)
  1. .DELTA.8-TETRAHYDROCANNABINOL\HERBALS [Suspect]
     Active Substance: .DELTA.8-TETRAHYDROCANNABINOL\HERBALS
     Indication: Feeling of relaxation
     Dosage: OTHER QUANTITY : 1 1;?OTHER FREQUENCY : 1 TIME;?
     Route: 048
     Dates: start: 20230327, end: 20230327

REACTIONS (1)
  - Derealisation [None]

NARRATIVE: CASE EVENT DATE: 20230327
